FAERS Safety Report 5910256-1 (Version None)
Quarter: 2008Q4

REPORT INFORMATION
  Report Type: 
  Country: None (occurrence: None)
  Receive Date: 20081007
  Receipt Date: 20071128
  Transmission Date: 20090506
  Serious: No
  Sender: FDA-Public Use
  Company Number: US-ASTRAZENECA-2007UW25936

PATIENT
  Age: 790 Month
  Sex: Female
  Weight: 70 kg

DRUGS (9)
  1. ARIMIDEX [Suspect]
     Indication: BREAST CANCER
     Route: 048
     Dates: start: 20070501
  2. NORTRIPTYLINE HCL [Concomitant]
  3. SYNTHROID [Concomitant]
  4. NORVASC [Concomitant]
  5. VYTORIN [Concomitant]
  6. HYDROCHLOROTHIAZIDE [Concomitant]
  7. INSULIN [Concomitant]
  8. TAXOTERE [Concomitant]
     Indication: BREAST CANCER
     Dates: end: 20070701
  9. CYTOXAN [Concomitant]
     Indication: BREAST CANCER
     Dates: end: 20070701

REACTIONS (1)
  - HAIR GROWTH ABNORMAL [None]
